FAERS Safety Report 8816060 (Version 3)
Quarter: 2012Q4

REPORT INFORMATION
  Report Type: Report from Study
  Country: US (occurrence: US)
  Receive Date: 20120928
  Receipt Date: 20121210
  Transmission Date: 20130627
  Serious: Yes (Hospitalization)
  Sender: FDA-Public Use
  Company Number: US-NOVOPROD-359445

PATIENT
  Age: 68 Year
  Sex: Male
  Weight: 124.54 kg

DRUGS (3)
  1. LIRAGLUTIDE FLEXPEN [Suspect]
     Indication: TYPE 2 DIABETES MELLITUS
     Dosage: 1.8 mg, qd
     Route: 058
     Dates: start: 20111201
  2. METOPROLOL [Concomitant]
     Indication: TYPE 2 DIABETES MELLITUS
     Dosage: 50 mg, qd
     Route: 065
     Dates: start: 20120710
  3. ASPIRIN [Concomitant]
     Indication: PROPHYLAXIS
     Dosage: 81.0 mg, qd
     Dates: start: 2004

REACTIONS (1)
  - Coronary artery disease [Recovered/Resolved]
